FAERS Safety Report 4527958-4 (Version None)
Quarter: 2004Q4

REPORT INFORMATION
  Report Type: 
  Country: None (occurrence: None)
  Receive Date: 20041123
  Receipt Date: 20031201
  Transmission Date: 20050328
  Serious: Yes (Hospitalization, Other)
  Sender: FDA-Public Use
  Company Number: 2003121231

PATIENT
  Age: 68 Year
  Sex: Male
  Weight: 88.4514 kg

DRUGS (20)
  1. LIPITOR [Suspect]
     Indication: BLOOD CHOLESTEROL INCREASED
     Dosage: 10 MG (DAILY), ORAL
     Route: 048
  2. TIKOSYN [Suspect]
     Indication: ATRIAL FIBRILLATION
     Dosage: ORAL
     Route: 048
     Dates: start: 20031125
  3. VALSARTAN [Suspect]
     Indication: HYPERTENSION
     Dates: start: 20030101
  4. DOXAZOSIN MESYLATE [Suspect]
     Indication: HYPERTENSION
     Dosage: 4 MG (DAILY), ORAL
     Route: 048
     Dates: start: 20030701
  5. CLONIDINE [Suspect]
     Indication: HYPERTENSION
     Dates: start: 20030101
  6. PREDNISONE [Suspect]
     Indication: URTICARIA
     Dates: start: 20030801
  7. ASPIRIN [Concomitant]
  8. TAMSULOSIN HYDROCHLORIDE (TAMSULOSIN HYDROCHLORIDE) [Concomitant]
  9. LORATADINE [Concomitant]
  10. SERENOA REPENS (SERENOA REPENS) [Concomitant]
  11. MULTIVITAMIN [Concomitant]
  12. ASCORBIC ACID [Concomitant]
  13. MAGNESIUM (MAGNESIUM) [Concomitant]
  14. CALCIUM (CALCIUM) [Concomitant]
  15. IBUPROFEN [Concomitant]
  16. ACETAMINOPHEN [Concomitant]
  17. TYLENOL PM (DIPHENHYDRAMINE, PARACETAMOL) [Concomitant]
  18. BENADRYL [Concomitant]
  19. ANTIHISTAMINES (ANTIHISTAMINES) [Concomitant]
  20. FEXOFENADINE HYDROCHLORIDE [Concomitant]

REACTIONS (5)
  - ANGIONEUROTIC OEDEMA [None]
  - ATRIAL FIBRILLATION [None]
  - DIZZINESS [None]
  - HYPERTENSION [None]
  - URTICARIA [None]
